FAERS Safety Report 10375437 (Version 1)
Quarter: 2014Q3

REPORT INFORMATION
  Report Type: Spontaneous
  Country: SG (occurrence: None)
  Receive Date: 20140806
  Receipt Date: 20140806
  Transmission Date: 20150326
  Serious: Yes (Death)
  Sender: FDA-Public Use
  Company Number: 2462730

PATIENT
  Age: 27 Year
  Sex: Female

DRUGS (3)
  1. VINCRISTINE SULFATE. [Suspect]
     Active Substance: VINCRISTINE SULFATE
     Indication: ACUTE LYMPHOCYTIC LEUKAEMIA
     Route: 037
  2. METHOTREXATE [Concomitant]
     Active Substance: METHOTREXATE
  3. VINCRISTINE ACUTE LYMPHOBLASTIC LEUKAEMIA [Concomitant]

REACTIONS (6)
  - Intentional product misuse [None]
  - Encephalomyelitis [None]
  - Coma [None]
  - Neurotoxicity [None]
  - Brain death [None]
  - Bronchopneumonia [None]
